FAERS Safety Report 10087196 (Version 1)
Quarter: 2014Q2

REPORT INFORMATION
  Report Type: Report from Study
  Country: US (occurrence: US)
  Receive Date: 20140418
  Receipt Date: 20140418
  Transmission Date: 20141212
  Serious: Yes (Other)
  Sender: FDA-Public Use
  Company Number: US-ABBVIE-14P-163-1225224-00

PATIENT
  Age: 64 Year
  Sex: Male
  Weight: 71.73 kg

DRUGS (10)
  1. HUMIRA [Suspect]
     Indication: COLITIS ULCERATIVE
     Dates: start: 2010
  2. COLCHICINE [Concomitant]
     Indication: ARTHRITIS
  3. FOLIC ACID [Concomitant]
     Indication: PRODUCT USED FOR UNKNOWN INDICATION
  4. VITAMIN D3 [Concomitant]
     Indication: ARTHRITIS
  5. VITAMIN B-12 [Concomitant]
     Indication: ARTHRITIS
  6. SYMBICORT [Concomitant]
     Indication: ASTHMA
  7. ALBUTEROL SULFATE [Concomitant]
     Indication: ASTHMA
  8. CATATHIL [Concomitant]
     Indication: DERMATITIS
  9. TRIAMCINOLONE [Concomitant]
     Indication: DERMATITIS
  10. METHOTREXATE [Concomitant]
     Indication: COLITIS ULCERATIVE

REACTIONS (2)
  - Trigger finger [Recovered/Resolved]
  - Peripheral swelling [Recovered/Resolved]
